FAERS Safety Report 22950137 (Version 3)
Quarter: 2024Q3

REPORT INFORMATION
  Report Type: Spontaneous
  Country: FR (occurrence: None)
  Receive Date: 20230915
  Receipt Date: 20240815
  Transmission Date: 20241017
  Serious: Yes (Death, Other)
  Sender: ASTRAZENECA
  Company Number: 2023A210219

PATIENT
  Age: 54 Year
  Sex: Female

DRUGS (10)
  1. QUETIAPINE FUMARATE [Suspect]
     Active Substance: QUETIAPINE FUMARATE
     Indication: Depression
     Route: 048
     Dates: start: 20201212, end: 20201212
  2. ABILIFY [Suspect]
     Active Substance: ARIPIPRAZOLE
     Indication: Depression
  3. CLOBAZAM [Suspect]
     Active Substance: CLOBAZAM
     Indication: Depression
  4. MIRTAZAPINE [Suspect]
     Active Substance: MIRTAZAPINE
  5. PAROXETINE MESYLATE [Suspect]
     Active Substance: PAROXETINE MESYLATE
  6. PERICIAZINE [Suspect]
     Active Substance: PERICIAZINE
  7. LYRICA [Suspect]
     Active Substance: PREGABALIN
     Indication: Depression
  8. BACLOFEN [Concomitant]
     Active Substance: BACLOFEN
     Indication: Alcoholism
  9. NORDAZEPAM [Concomitant]
     Active Substance: NORDAZEPAM
  10. AMITRIPTYLINE HYDROCHLORIDE [Concomitant]
     Active Substance: AMITRIPTYLINE HYDROCHLORIDE
     Indication: Depression

REACTIONS (11)
  - Cerebrovascular accident [Fatal]
  - Epistaxis [Fatal]
  - Cardiovascular disorder [Fatal]
  - Respiratory distress [Fatal]
  - Drug dispensed to wrong patient [Fatal]
  - Product prescribing error [Fatal]
  - Wrong patient received product [Fatal]
  - Drug interaction [Unknown]
  - Intentional product misuse [Unknown]
  - Drug effect less than expected [Unknown]
  - Product administered by wrong person [Unknown]

NARRATIVE: CASE EVENT DATE: 20201201
